FAERS Safety Report 23458820 (Version 2)
Quarter: 2024Q1

REPORT INFORMATION
  Report Type: Spontaneous
  Country: US (occurrence: US)
  Receive Date: 20240131
  Receipt Date: 20240304
  Transmission Date: 20240410
  Serious: Yes (Hospitalization, Other)
  Sender: FDA-Public Use
  Company Number: US-ABBVIE-5606715

PATIENT
  Age: 86 Year
  Sex: Female
  Weight: 57 kg

DRUGS (3)
  1. FLUOROMETHOLONE [Suspect]
     Active Substance: FLUOROMETHOLONE
     Indication: Dry eye
     Dosage: 1 DROP ON BOTH EYES?FORM STRENGTH WAS 1MG/ML
     Route: 047
     Dates: start: 20231110, end: 20231114
  2. FLUOROMETHOLONE [Suspect]
     Active Substance: FLUOROMETHOLONE
     Indication: Preoperative care
  3. ASPIRIN [Concomitant]
     Active Substance: ASPIRIN
     Indication: Product used for unknown indication
     Route: 065

REACTIONS (13)
  - Cerebrovascular accident [Recovering/Resolving]
  - Drug hypersensitivity [Not Recovered/Not Resolved]
  - Emotional distress [Not Recovered/Not Resolved]
  - Cataract [Not Recovered/Not Resolved]
  - Illness [Unknown]
  - Speech disorder [Not Recovered/Not Resolved]
  - Eyelid ptosis [Recovered/Resolved]
  - Inflammation [Recovering/Resolving]
  - Peripheral swelling [Recovering/Resolving]
  - Oral discharge [Recovering/Resolving]
  - Fall [Recovered/Resolved]
  - Unevaluable event [Unknown]
  - Nausea [Unknown]

NARRATIVE: CASE EVENT DATE: 20231101
